FAERS Safety Report 5748962-4 (Version None)
Quarter: 2008Q2

REPORT INFORMATION
  Report Type: 
  Country: None (occurrence: None)
  Receive Date: 20080527
  Receipt Date: 20080521
  Transmission Date: 20081010
  Serious: Yes (Hospitalization)
  Sender: FDA-Public Use
  Company Number: JP-SP-2008-01089

PATIENT
  Age: 61 Year
  Sex: Male

DRUGS (7)
  1. IMMUCYST [Suspect]
     Indication: BLADDER CANCER
     Route: 043
     Dates: start: 20071026, end: 20071226
  2. IMMUCYST [Suspect]
     Route: 043
     Dates: start: 20071026, end: 20071226
  3. IMMUCYST [Suspect]
     Route: 043
     Dates: start: 20071026, end: 20071226
  4. IMMUCYST [Suspect]
     Route: 043
     Dates: start: 20071026, end: 20071226
  5. ZOPICLONE [Concomitant]
     Dates: start: 20071014, end: 20071021
  6. ZOPICLONE [Concomitant]
     Dates: start: 20071109, end: 20071213
  7. LOXOPROFEN SODIUM [Concomitant]
     Dates: start: 20071026, end: 20071102

REACTIONS (4)
  - DYSURIA [None]
  - EPIDIDYMITIS [None]
  - GAIT DISTURBANCE [None]
  - PROSTATITIS [None]
